FAERS Safety Report 4755921-7 (Version None)
Quarter: 2005Q3

REPORT INFORMATION
  Report Type: 
  Country: None (occurrence: None)
  Receive Date: 20050830
  Receipt Date: 20050822
  Transmission Date: 20060218
  Serious: Yes (Other)
  Sender: FDA-Public Use
  Company Number: US-JNJFOC-20050805143

PATIENT
  Sex: Female
  Weight: 77.11 kg

DRUGS (1)
  1. REMICADE [Suspect]
     Route: 042

REACTIONS (4)
  - CHILLS [None]
  - PAIN [None]
  - PYREXIA [None]
  - TRISMUS [None]
